FAERS Safety Report 5575172-6 (Version None)
Quarter: 2007Q4

REPORT INFORMATION
  Report Type: 
  Country: None (occurrence: None)
  Receive Date: 20071227
  Receipt Date: 20071220
  Transmission Date: 20080405
  Serious: Yes (Other)
  Sender: FDA-Public Use
  Company Number: US-PFIZER INC-2007107550

PATIENT
  Sex: Male
  Weight: 77.1 kg

DRUGS (3)
  1. LYRICA [Suspect]
     Indication: SPINAL COLUMN STENOSIS
  2. ZYRTEC [Suspect]
     Indication: HYPERSENSITIVITY
  3. HYDROCHLOROTHIAZIDE [Concomitant]

REACTIONS (6)
  - GAIT DISTURBANCE [None]
  - HEADACHE [None]
  - INFLAMMATION [None]
  - NEURALGIA [None]
  - SLEEP DISORDER [None]
  - SPINAL COLUMN STENOSIS [None]
